FAERS Safety Report 9476790 (Version 2)
Quarter: 2013Q3

REPORT INFORMATION
  Report Type: Report from Study
  Country: CA (occurrence: CA)
  Receive Date: 20130826
  Receipt Date: 20130826
  Transmission Date: 20140515
  Serious: Yes (Other)
  Sender: FDA-Public Use
  Company Number: CA-ROCHE-1196827

PATIENT
  Age: 72 Year
  Sex: Female
  Weight: 63.5 kg

DRUGS (16)
  1. RITUXAN [Suspect]
     Indication: RHEUMATOID ARTHRITIS
     Route: 042
     Dates: start: 20120808
  2. RITUXAN [Suspect]
     Indication: PULMONARY MASS
  3. RITUXAN [Suspect]
     Indication: PNEUMOTHORAX
  4. COVERSYL [Suspect]
     Indication: HYPERTENSION
     Route: 065
  5. COVERSYL [Suspect]
     Route: 065
  6. HYDROCHLOROTHIAZIDE [Suspect]
     Indication: HYPERTENSION
     Route: 065
     Dates: start: 2012
  7. HYDROCHLOROTHIAZIDE [Suspect]
     Route: 065
  8. DIPHENHYDRAMINE HCL [Concomitant]
     Indication: PREMEDICATION
     Route: 048
     Dates: start: 20120808
  9. ACETAMINOPHEN [Concomitant]
     Indication: PREMEDICATION
     Route: 048
     Dates: start: 20120808
  10. PREDNISONE [Concomitant]
     Indication: PREMEDICATION
     Route: 065
     Dates: start: 20120808
  11. ALENDRONATE [Concomitant]
  12. SULFASALAZINE [Concomitant]
  13. METHOTREXATE [Concomitant]
     Route: 065
  14. FOLIC ACID [Concomitant]
     Route: 065
  15. MELOXICAM [Concomitant]
  16. HYDROXYCHLOROQUINE [Concomitant]

REACTIONS (4)
  - Huerthle cell carcinoma [Not Recovered/Not Resolved]
  - Hypotension [Unknown]
  - Oedema peripheral [Unknown]
  - Blood pressure increased [Unknown]
